FAERS Safety Report 4824325-0 (Version None)
Quarter: 2005Q4

REPORT INFORMATION
  Report Type: 
  Country: None (occurrence: None)
  Receive Date: 20051109
  Receipt Date: 20050922
  Transmission Date: 20060501
  Serious: Yes (Other)
  Sender: FDA-Public Use
  Company Number: DE-MERCK-0509DEU00145

PATIENT
  Age: 44 Year
  Sex: Male
  Weight: 62 kg

DRUGS (5)
  1. CRIXIVAN [Suspect]
     Indication: HIV INFECTION
     Route: 048
     Dates: start: 19961201, end: 20050501
  2. CRIXIVAN [Suspect]
     Indication: PNEUMOCYSTIS JIROVECI PNEUMONIA
     Route: 048
     Dates: start: 19961201, end: 20050501
  3. ZIDOVUDINE [Concomitant]
     Route: 048
     Dates: start: 19961201
  4. LEVOTHYROXINE SODIUM [Concomitant]
     Indication: BASEDOW'S DISEASE
     Route: 048
     Dates: start: 20010101
  5. LAMIVUDINE [Concomitant]
     Route: 048
     Dates: start: 19961201

REACTIONS (6)
  - BASEDOW'S DISEASE [None]
  - DIFFICULTY IN WALKING [None]
  - NECROSIS [None]
  - OSTEOARTHRITIS [None]
  - OSTEONECROSIS [None]
  - OSTEOPENIA [None]
